FAERS Safety Report 8956398 (Version 1)
Quarter: 2012Q4

REPORT INFORMATION
  Report Type: 
  Country: BE (occurrence: BE)
  Receive Date: 20121210
  Receipt Date: 20121210
  Transmission Date: 20130627
  Serious: Yes (Other)
  Sender: FDA-Public Use
  Company Number: BE-UCBSA-072592

PATIENT
  Sex: Female

DRUGS (3)
  1. VIMPAT [Suspect]
     Indication: PARTIAL SEIZURES
     Dosage: TOTAL DAILY DOSE: 350 MG, DIVIDED OVER TWO DAILY DOSES
     Route: 048
  2. DEPAKINE [Concomitant]
     Indication: PARTIAL SEIZURES
  3. LAMICTAL [Concomitant]
     Indication: PARTIAL SEIZURES

REACTIONS (1)
  - Myoclonus [Recovered/Resolved]
